FAERS Safety Report 5632707-2 (Version None)
Quarter: 2008Q1

REPORT INFORMATION
  Report Type: 
  Country: None (occurrence: None)
  Receive Date: 20080219
  Receipt Date: 20080130
  Transmission Date: 20080703
  Serious: Yes (Hospitalization)
  Sender: FDA-Public Use
  Company Number: A-US2007-18632

PATIENT
  Age: 72 Year
  Sex: Female
  Weight: 62.8 kg

DRUGS (20)
  1. TRACLEER [Suspect]
     Indication: PULMONARY HYPERTENSION
     Dosage: 62.5 MG, BID, ORAL; 125 MG, BID, ORAL
     Route: 048
     Dates: start: 20060930, end: 20061031
  2. TRACLEER [Suspect]
     Indication: PULMONARY HYPERTENSION
     Dosage: 62.5 MG, BID, ORAL; 125 MG, BID, ORAL
     Route: 048
     Dates: start: 20061101, end: 20080109
  3. REVIA [Suspect]
     Dates: start: 20080102, end: 20080105
  4. REVATIO [Concomitant]
  5. SYNTHROID [Concomitant]
  6. DIGOXIN [Concomitant]
  7. CALCIUM (CALCIUM) [Concomitant]
  8. ACTONEL [Concomitant]
  9. COUMADIN [Concomitant]
  10. QUESTRAN [Concomitant]
  11. LOMOTIL [Concomitant]
  12. FERROUS SULFATE TAB [Concomitant]
  13. LASIX [Concomitant]
  14. KAOPECTATE (PECTIN, KAOLIN) [Concomitant]
  15. ULTRAM [Concomitant]
  16. PROTONIX [Concomitant]
  17. FLAGYL [Concomitant]
  18. SPIRONOLACTONE [Concomitant]
  19. EXTRA STRENGTH TYLENOL [Concomitant]
  20. ZAROXOLYN [Concomitant]

REACTIONS (10)
  - ALANINE AMINOTRANSFERASE INCREASED [None]
  - ASPARTATE AMINOTRANSFERASE INCREASED [None]
  - BLOOD BILIRUBIN INCREASED [None]
  - DIARRHOEA [None]
  - DRUG TOXICITY [None]
  - FEELING ABNORMAL [None]
  - GASTROINTESTINAL HAEMORRHAGE [None]
  - HAEMORRHAGE [None]
  - HALLUCINATION [None]
  - WRONG DRUG ADMINISTERED [None]
